FAERS Safety Report 7538707-X (Version None)
Quarter: 2011Q2

REPORT INFORMATION
  Report Type: 
  Country: None (occurrence: None)
  Receive Date: 20110610
  Receipt Date: 20110609
  Transmission Date: 20111010
  Serious: No
  Sender: FDA-Public Use
  Company Number: US-PFIZER INC-2011126517

PATIENT
  Sex: Female
  Weight: 57.1 kg

DRUGS (2)
  1. CELEBREX [Suspect]
     Indication: ARTHRITIS
     Dosage: 200 MG, DAILY
     Route: 048
     Dates: start: 20110608
  2. PRILOSEC [Concomitant]
     Dosage: UNK

REACTIONS (1)
  - POLLAKIURIA [None]
